FAERS Safety Report 5985260-8 (Version None)
Quarter: 2008Q4

REPORT INFORMATION
  Report Type: 
  Country: None (occurrence: None)
  Receive Date: 20081203
  Receipt Date: 20081107
  Transmission Date: 20090506
  Serious: No
  Sender: FDA-Public Use
  Company Number: ADE# 08-181

PATIENT
  Sex: Female
  Weight: 90.7194 kg

DRUGS (5)
  1. CLONAZEPAM [Suspect]
     Indication: ANXIETY
     Dosage: 3 TABLETS DAILY
     Dates: start: 20060101
  2. VALTREX [Concomitant]
  3. MINOCYCLINE HCL [Concomitant]
  4. ALLI [Concomitant]
  5. VITAMIN CAP [Concomitant]

REACTIONS (1)
  - TOXICOLOGIC TEST ABNORMAL [None]
